FAERS Safety Report 8062829-0 (Version None)
Quarter: 2012Q1

REPORT INFORMATION
  Report Type: 
  Country: None (occurrence: None)
  Receive Date: 20120123
  Receipt Date: 20120116
  Transmission Date: 20120608
  Serious: Yes (Other)
  Sender: FDA-Public Use
  Company Number: IT-TEVA-318228ISR

PATIENT
  Sex: Male

DRUGS (4)
  1. BICALUTAMIDE TEVA [Suspect]
     Indication: PROSTATE CANCER
     Dosage: 50 MILLIGRAM;
     Route: 048
     Dates: start: 20111111, end: 20111206
  2. ASPIRIN [Concomitant]
  3. LANSOPRAZOLO [Concomitant]
  4. SIMVASTATIN [Concomitant]

REACTIONS (2)
  - DERMATITIS BULLOUS [None]
  - PRURITUS GENERALISED [None]
